FAERS Safety Report 18376526 (Version 2)
Quarter: 2021Q1

REPORT INFORMATION
  Report Type: Report from Study
  Country: DE (occurrence: DE)
  Receive Date: 20201013
  Receipt Date: 20210211
  Transmission Date: 20210419
  Serious: Yes (Hospitalization)
  Sender: FDA-Public Use
  Company Number: DE-JNJFOC-20200909642

PATIENT
  Age: 72 Year
  Sex: Male
  Weight: 107 kg

DRUGS (10)
  1. VALSARTAN. [Concomitant]
     Active Substance: VALSARTAN
     Dosage: 80 MG, HS
  2. CARVEDILOL. [Concomitant]
     Active Substance: CARVEDILOL
     Dosage: 50 MG, QD
  3. APIDRA [Concomitant]
     Active Substance: INSULIN GLULISINE
     Dosage: ACCORDING TO SCHEME
  4. EPLERENONE. [Concomitant]
     Active Substance: EPLERENONE
     Dosage: 25 MG
  5. HCT [Concomitant]
     Active Substance: HYDROCHLOROTHIAZIDE
     Dosage: 25 MG
  6. ATORVASTATIN [Concomitant]
     Active Substance: ATORVASTATIN
     Dosage: 40 MG, HS
  7. RIVAROXABAN [Suspect]
     Active Substance: RIVAROXABAN
     Indication: ATRIAL FIBRILLATION
     Dosage: 20 MG, QD
     Route: 048
     Dates: start: 20170307
  8. LANTUS [Concomitant]
     Active Substance: INSULIN GLARGINE
     Dosage: 28 IU, HS
  9. TRULICITY [Concomitant]
     Active Substance: DULAGLUTIDE
     Dosage: 1.5 G, OW
  10. L?THYROXINE [LEVOTHYROXINE] [Concomitant]
     Active Substance: LEVOTHYROXINE
     Dosage: 125 UG

REACTIONS (1)
  - Ischaemic stroke [Recovered/Resolved with Sequelae]

NARRATIVE: CASE EVENT DATE: 20171231
